FAERS Safety Report 6085243-6 (Version None)
Quarter: 2009Q1

REPORT INFORMATION
  Report Type: 
  Country: None (occurrence: None)
  Receive Date: 20090220
  Receipt Date: 20090213
  Transmission Date: 20090719
  Serious: Yes (Hospitalization)
  Sender: FDA-Public Use
  Company Number: US-JNJFOC-20090203706

PATIENT
  Sex: Male
  Weight: 117.94 kg

DRUGS (4)
  1. DURAGESIC-100 [Suspect]
     Route: 062
  2. DURAGESIC-100 [Suspect]
     Route: 062
  3. DURAGESIC-100 [Suspect]
     Indication: ARTHRALGIA
     Route: 062
  4. FENTANYL TRANSDERMAL SYSTEM [Suspect]
     Indication: ARTHRALGIA
     Route: 062

REACTIONS (11)
  - ACCIDENT [None]
  - APPLICATION SITE DISCOLOURATION [None]
  - APPLICATION SITE ERYTHEMA [None]
  - APPLICATION SITE SWELLING [None]
  - DRUG DOSE OMISSION [None]
  - ERYTHEMA [None]
  - INCORRECT DRUG ADMINISTRATION DURATION [None]
  - LEUKAEMIA [None]
  - LOCAL SWELLING [None]
  - OSTEOARTHRITIS [None]
  - WITHDRAWAL SYNDROME [None]
